FAERS Safety Report 5443063-7 (Version None)
Quarter: 2007Q3

REPORT INFORMATION
  Report Type: 
  Country: None (occurrence: None)
  Receive Date: 20070827
  Receipt Date: 20070723
  Transmission Date: 20080115
  Serious: Yes (Hospitalization)
  Sender: FDA-Public Use
  Company Number: WS1636-WS1665

PATIENT
  Age: 60 Year
  Sex: Male
  Weight: 67.8128 kg

DRUGS (18)
  1. WINRHO SD [Suspect]
     Indication: ACQUIRED IMMUNODEFICIENCY SYNDROME
     Dosage: 25 MCG/KG ONCE IV
     Route: 042
     Dates: start: 19950926, end: 19950926
  2. WINRHO SD [Suspect]
     Indication: IDIOPATHIC THROMBOCYTOPENIC PURPURA
     Dosage: 25 MCG/KG ONCE IV
     Route: 042
     Dates: start: 19950926, end: 19950926
  3. FIORICET [Concomitant]
  4. PERI-COLACE [Concomitant]
  5. DULCOLAX [Concomitant]
  6. ZOLOFT [Concomitant]
  7. TEGRETOL [Concomitant]
  8. DEMEROL [Concomitant]
  9. MYCELEX [Concomitant]
  10. NYSTATIN [Concomitant]
  11. ZOFRAN [Concomitant]
  12. HIVID [Concomitant]
  13. AZT [Concomitant]
  14. BACTRIM [Concomitant]
  15. STEROIDS [Concomitant]
  16. DANOCRINE [Concomitant]
  17. ASPIRIN [Concomitant]
  18. TIGAN [Concomitant]

REACTIONS (10)
  - BACK PAIN [None]
  - BLOOD PRESSURE DECREASED [None]
  - CARDIAC FAILURE CONGESTIVE [None]
  - INTRAVASCULAR HAEMOLYSIS [None]
  - ORAL INTAKE REDUCED [None]
  - PNEUMONIA [None]
  - PYREXIA [None]
  - RENAL DISORDER [None]
  - RENAL FAILURE ACUTE [None]
  - WEIGHT DECREASED [None]
